FAERS Safety Report 23683468 (Version 3)
Quarter: 2025Q1

REPORT INFORMATION
  Report Type: Report from Study
  Country: US (occurrence: US)
  Receive Date: 20240328
  Receipt Date: 20250124
  Transmission Date: 20250409
  Serious: No
  Sender: ASTELLAS
  Company Number: US-ASTELLAS-2024US008917

PATIENT
  Age: 55 Year
  Sex: Female

DRUGS (7)
  1. FEZOLINETANT [Suspect]
     Active Substance: FEZOLINETANT
     Indication: Menopausal symptoms
     Route: 048
     Dates: end: 20240313
  2. FEZOLINETANT [Suspect]
     Active Substance: FEZOLINETANT
     Route: 048
     Dates: start: 202308, end: 20230829
  3. TYLENOL [Concomitant]
     Active Substance: ACETAMINOPHEN
     Indication: Pain
     Dosage: 325MGX2 Q6H PRN
     Route: 048
  4. CELECOXIB [Concomitant]
     Active Substance: CELECOXIB
     Indication: Product used for unknown indication
     Route: 048
  5. ZYRTEC [Concomitant]
     Active Substance: CETIRIZINE HYDROCHLORIDE
     Indication: Product used for unknown indication
     Dosage: AD
     Route: 065
  6. FLUTICASONE PROPIONATE [Concomitant]
     Active Substance: FLUTICASONE PROPIONATE
     Indication: Product used for unknown indication
     Dosage: SUSPENSION 50MCGACTUATION ADMINISTER INTO EACH NOSTRIL
     Route: 045
  7. BLACK COHOSH [Concomitant]
     Active Substance: BLACK COHOSH
     Indication: Menopause
     Dosage: AD
     Route: 065

REACTIONS (1)
  - Aspartate aminotransferase increased [Recovered/Resolved]

NARRATIVE: CASE EVENT DATE: 20240311
